FAERS Safety Report 7429646-3 (Version None)
Quarter: 2011Q2

REPORT INFORMATION
  Report Type: 
  Country: None (occurrence: None)
  Receive Date: 20110421
  Receipt Date: 20110416
  Transmission Date: 20111010
  Serious: Yes (Hospitalization)
  Sender: FDA-Public Use
  Company Number: IN-PFIZER INC-2011042573

PATIENT
  Age: 71 Year
  Sex: Male
  Weight: 55 kg

DRUGS (4)
  1. CARVEDILOL [Concomitant]
     Dosage: UNK
     Route: 048
     Dates: start: 20090622
  2. RAMIPRIL [Concomitant]
     Dosage: UNK
     Route: 048
     Dates: start: 20090728
  3. EPLERENONE [Suspect]
     Indication: CARDIAC FAILURE
     Dosage: 25 MG, 1X/DAY
     Route: 048
     Dates: start: 20101115
  4. CLOPIDOGREL [Concomitant]
     Dosage: UNK
     Route: 048
     Dates: start: 20090622

REACTIONS (1)
  - CHOLECYSTITIS [None]
